FAERS Safety Report 15477633 (Version 1)
Quarter: 2018Q4

REPORT INFORMATION
  Report Type: Spontaneous
  Country: US (occurrence: US)
  Receive Date: 20181009
  Receipt Date: 20181009
  Transmission Date: 20190205
  Serious: Yes (Other)
  Sender: FDA-Public Use
  Company Number: PHEH2018US041630

PATIENT
  Age: 33 Year
  Sex: Female

DRUGS (6)
  1. CYTOXAN [Suspect]
     Active Substance: CYCLOPHOSPHAMIDE
     Indication: TRIPLE NEGATIVE BREAST CANCER
     Dosage: UNK
     Route: 065
     Dates: start: 20180510, end: 20180607
  2. CARBOPLATIN. [Suspect]
     Active Substance: CARBOPLATIN
     Indication: TRIPLE NEGATIVE BREAST CANCER
     Dosage: UNK
     Route: 065
     Dates: start: 20180607
  3. CARBOPLATIN. [Suspect]
     Active Substance: CARBOPLATIN
     Dosage: Q3W
     Route: 065
  4. TAXOL [Suspect]
     Active Substance: PACLITAXEL
     Dosage: QW
     Route: 065
  5. ADRIAMYCIN [Suspect]
     Active Substance: DOXORUBICIN HYDROCHLORIDE
     Indication: TRIPLE NEGATIVE BREAST CANCER
     Dosage: UNK
     Route: 065
     Dates: start: 20180510, end: 20180607
  6. TAXOL [Suspect]
     Active Substance: PACLITAXEL
     Indication: TRIPLE NEGATIVE BREAST CANCER
     Dosage: UNK
     Route: 065
     Dates: start: 20180607

REACTIONS (9)
  - Metastases to neck [Unknown]
  - Post procedural complication [Unknown]
  - Breast mass [Unknown]
  - Lymphatic disorder [Unknown]
  - Rash [Unknown]
  - Malignant neoplasm progression [Unknown]
  - White blood cell count decreased [Unknown]
  - Haematotoxicity [Unknown]
  - Triple negative breast cancer [Unknown]

NARRATIVE: CASE EVENT DATE: 20180816
